FAERS Safety Report 11696340 (Version 2)
Quarter: 2015Q4

REPORT INFORMATION
  Report Type: Spontaneous
  Country: ES (occurrence: ES)
  Receive Date: 20151104
  Receipt Date: 20151116
  Transmission Date: 20160304
  Serious: Yes (Other)
  Sender: FDA-Public Use
  Company Number: ES-MYLANLABS-2015M1037542

PATIENT

DRUGS (1)
  1. ALTELLUS [Suspect]
     Active Substance: EPINEPHRINE
     Indication: ALLERGY TO ARTHROPOD STING

REACTIONS (3)
  - Device failure [Unknown]
  - Drug ineffective [Unknown]
  - Underdose [Unknown]
